FAERS Safety Report 16164346 (Version 3)
Quarter: 2019Q2

REPORT INFORMATION
  Report Type: Spontaneous
  Country: US (occurrence: US)
  Receive Date: 20190405
  Receipt Date: 20190503
  Transmission Date: 20190711
  Serious: No
  Sender: FDA-Public Use
  Company Number: US-MTPC-MTDA2019-0041387

PATIENT

DRUGS (2)
  1. RADICAVA [Suspect]
     Active Substance: EDARAVONE
     Indication: AMYOTROPHIC LATERAL SCLEROSIS
     Dosage: 60 MILLIGRAM, QD OVER 60 MINS FOR 14 DAYS
     Route: 042
     Dates: start: 2018
  2. RADICAVA [Suspect]
     Active Substance: EDARAVONE
     Dosage: 60 MILLIGRAM QD FOR 10 OUT OF 14 DAYS
     Route: 042

REACTIONS (2)
  - Treatment noncompliance [Unknown]
  - Therapeutic response unexpected [Unknown]
